FAERS Safety Report 4888356-7 (Version None)
Quarter: 2006Q1

REPORT INFORMATION
  Report Type: 
  Country: None (occurrence: None)
  Receive Date: 20060119
  Receipt Date: 20060119
  Transmission Date: 20060701
  Serious: No
  Sender: FDA-Public Use
  Company Number: None

PATIENT
  Age: 50 Year
  Sex: Female

DRUGS (1)
  1. PROLIXIN [Suspect]
     Dosage: TAB

REACTIONS (2)
  - MEDICATION ERROR [None]
  - SOMNOLENCE [None]
